FAERS Safety Report 10298456 (Version 3)
Quarter: 2015Q3

REPORT INFORMATION
  Report Type: Spontaneous
  Country: US (occurrence: US)
  Receive Date: 20140711
  Receipt Date: 20150814
  Transmission Date: 20151125
  Serious: No
  Sender: FDA-Public Use
  Company Number: US-GILEAD-2013-0082170

PATIENT
  Age: 76 Year
  Sex: Female
  Weight: 96.15 kg

DRUGS (25)
  1. LISINOPRIL. [Concomitant]
     Active Substance: LISINOPRIL
  2. LOVATADIN [Concomitant]
  3. VITAMIN E [Concomitant]
     Active Substance: .ALPHA.-TOCOPHEROL
  4. SYNTHROID [Concomitant]
     Active Substance: LEVOTHYROXINE SODIUM
  5. REVATIO [Concomitant]
     Active Substance: SILDENAFIL CITRATE
  6. IRON [Concomitant]
     Active Substance: IRON
  7. COREG [Concomitant]
     Active Substance: CARVEDILOL
  8. LEVEMIR [Concomitant]
     Active Substance: INSULIN DETEMIR
  9. ALBUTEROL                          /00139501/ [Concomitant]
     Active Substance: ALBUTEROL
  10. PEPCID [Concomitant]
     Active Substance: FAMOTIDINE
  11. LETAIRIS [Suspect]
     Active Substance: AMBRISENTAN
     Indication: PULMONARY HYPERTENSION
     Dosage: 10 MG, QD
     Route: 048
     Dates: start: 20110720, end: 201308
  12. ASA [Concomitant]
     Active Substance: ASPIRIN
  13. METFORMIN [Concomitant]
     Active Substance: METFORMIN HYDROCHLORIDE
  14. DILTIAZEM [Concomitant]
     Active Substance: DILTIAZEM
  15. GLYBURIDE. [Concomitant]
     Active Substance: GLYBURIDE
  16. VITAMIN B12 [Concomitant]
     Active Substance: CYANOCOBALAMIN
  17. LACTULOSE. [Concomitant]
     Active Substance: LACTULOSE
  18. DUONEB [Concomitant]
     Active Substance: ALBUTEROL SULFATE\IPRATROPIUM BROMIDE
  19. MAGNESIUM [Concomitant]
     Active Substance: MAGNESIUM
  20. WARFARIN [Concomitant]
     Active Substance: WARFARIN
  21. FUROSEMIDE. [Concomitant]
     Active Substance: FUROSEMIDE
  22. AMIODARONE [Concomitant]
     Active Substance: AMIODARONE
  23. LETAIRIS [Suspect]
     Active Substance: AMBRISENTAN
     Indication: LUNG DISORDER
  24. VYTORIN [Concomitant]
     Active Substance: EZETIMIBE\SIMVASTATIN
  25. VITAMIN D [Concomitant]
     Active Substance: CHOLECALCIFEROL

REACTIONS (4)
  - Dyspnoea [Recovered/Resolved]
  - Swelling [Unknown]
  - Oedema [Recovered/Resolved]
  - Fatigue [Recovered/Resolved]

NARRATIVE: CASE EVENT DATE: 201307
